FAERS Safety Report 18144269 (Version 1)
Quarter: 2020Q3

REPORT INFORMATION
  Report Type: Spontaneous
  Country: US (occurrence: US)
  Receive Date: 20200812
  Receipt Date: 20200812
  Transmission Date: 20201103
  Serious: No
  Sender: FDA-Public Use
  Company Number: None

PATIENT
  Age: 43 Year
  Sex: Female
  Weight: 87.1 kg

DRUGS (8)
  1. ACETAMINOPHEN 1000 MG IVPB [Concomitant]
     Dates: start: 20200806
  2. PHENOBARBITAL 150 MG IVPB [Concomitant]
     Dates: start: 20200807
  3. ENOXAPARIN 40 MG SUBCUT [Concomitant]
     Dates: start: 20200810
  4. LORAZEPAM 1 MG IVP [Concomitant]
     Dates: start: 20200806
  5. NYSTATIN TOPICAL POWDER [Concomitant]
     Dates: start: 20200808
  6. MIDAZOLAM 5?10 MG INTRANASAL [Concomitant]
     Dates: start: 20200806
  7. REMDESIVIR. [Suspect]
     Active Substance: REMDESIVIR
     Indication: COVID-19
     Route: 041
     Dates: start: 20200810, end: 20200812
  8. DEXAMETHASONE 6 MG IVP [Concomitant]
     Dates: start: 20200810

REACTIONS (1)
  - Liver function test increased [None]

NARRATIVE: CASE EVENT DATE: 20200812
